FAERS Safety Report 21616602 (Version 2)
Quarter: 2024Q4

REPORT INFORMATION
  Report Type: Spontaneous
  Country: US (occurrence: US)
  Receive Date: 20221118
  Receipt Date: 20241016
  Transmission Date: 20250115
  Serious: No
  Sender: SANOFI AVENTIS
  Company Number: US-SA-SAC20221115000255

PATIENT
  Age: 72 Year
  Sex: Male
  Weight: 90.71 kg

DRUGS (10)
  1. DUPIXENT [Suspect]
     Active Substance: DUPILUMAB
     Indication: Chronic rhinosinusitis with nasal polyps
     Dosage: 300 MG, QOW
     Route: 058
     Dates: start: 20201215
  2. DUPIXENT [Suspect]
     Active Substance: DUPILUMAB
     Indication: Nasal polyps
  3. ASPIRIN [Concomitant]
     Active Substance: ASPIRIN
  4. ASTAXANTHIN [Concomitant]
     Active Substance: ASTAXANTHIN
  5. ECHINACEA [ECHINACEA PURPUREA] [Concomitant]
  6. GARLIC [Concomitant]
     Active Substance: GARLIC
  7. MINERALS\VITAMINS [Concomitant]
     Active Substance: MINERALS\VITAMINS
  8. FISH OIL [Concomitant]
     Active Substance: FISH OIL
  9. ZYRTEC [Concomitant]
     Active Substance: CETIRIZINE HYDROCHLORIDE
  10. SAMBUCOL BLACK ELDERBERRY [Concomitant]

REACTIONS (2)
  - COVID-19 [Recovered/Resolved]
  - Dry eye [Not Recovered/Not Resolved]

NARRATIVE: CASE EVENT DATE: 20230101
